FAERS Safety Report 6913083-1 (Version None)
Quarter: 2010Q3

REPORT INFORMATION
  Report Type: 
  Country: None (occurrence: None)
  Receive Date: 20100806
  Receipt Date: 20090707
  Transmission Date: 20110219
  Serious: No
  Sender: FDA-Public Use
  Company Number: US-PFIZER INC-2008021562

PATIENT
  Sex: Female

DRUGS (6)
  1. DETROL LA [Suspect]
     Route: 048
     Dates: start: 20080218
  2. DETROL [Suspect]
  3. TOVIAZ [Suspect]
  4. TROSPIUM [Suspect]
  5. SYNTHROID [Concomitant]
  6. ALPRAZOLAM [Concomitant]

REACTIONS (3)
  - DIZZINESS [None]
  - DRUG INEFFECTIVE [None]
  - PSYCHOMOTOR HYPERACTIVITY [None]
